FAERS Safety Report 13455032 (Version 1)
Quarter: 2017Q2

REPORT INFORMATION
  Report Type: Spontaneous
  Country: IT (occurrence: IT)
  Receive Date: 20170418
  Receipt Date: 20170418
  Transmission Date: 20170830
  Serious: Yes (Other)
  Sender: FDA-Public Use
  Company Number: IT-INDIVIOR LIMITED-INDV-100422-2017

PATIENT
  Sex: Male

DRUGS (7)
  1. BUPRENORPHINE/NALOXONE BRAND UNSPECIFIED [Suspect]
     Active Substance: BUPRENORPHINE\NALOXONE
     Indication: DRUG USE DISORDER
     Dosage: UNK
     Route: 065
     Dates: start: 2010, end: 2010
  2. BUPRENORPHINE/NALOXONE BRAND UNSPECIFIED [Suspect]
     Active Substance: BUPRENORPHINE\NALOXONE
     Dosage: UNK
     Route: 065
     Dates: start: 2016, end: 2016
  3. HEROIN [Suspect]
     Active Substance: DIAMORPHINE
     Dosage: UNK (10 HOURS BEFORE INDUCTION)
     Route: 042
     Dates: start: 2016
  4. BUPRENORPHINE/NALOXONE BRAND UNSPECIFIED [Suspect]
     Active Substance: BUPRENORPHINE\NALOXONE
     Dosage: INCREASED TO 4MG A DAY
     Route: 065
  5. BUPRENORPHINE/NALOXONE BRAND UNSPECIFIED [Suspect]
     Active Substance: BUPRENORPHINE\NALOXONE
     Dosage: STABILIZED WITH A DOSE OF 16MG/ DAY
     Route: 065
  6. HEROIN [Suspect]
     Active Substance: DIAMORPHINE
     Indication: PRODUCT USED FOR UNKNOWN INDICATION
     Dosage: UNK
     Route: 042
     Dates: start: 2016
  7. BUPRENORPHINE/NALOXONE BRAND UNSPECIFIED [Suspect]
     Active Substance: BUPRENORPHINE\NALOXONE
     Dosage: GRADUAL DOSE OF 8 MG (2 MG + 2 MG + 2 MG + 2 MG)
     Route: 065
     Dates: start: 2016

REACTIONS (8)
  - Drug withdrawal syndrome [Unknown]
  - Hepatitis C [Unknown]
  - Impatience [Unknown]
  - Intentional underdose [Recovered/Resolved]
  - Drug use disorder [Unknown]
  - Adverse event [Unknown]
  - Drug intolerance [Unknown]
  - Drug use disorder [Unknown]

NARRATIVE: CASE EVENT DATE: 2010
